FAERS Safety Report 8997642 (Version 1)
Quarter: 2013Q1

REPORT INFORMATION
  Report Type: Spontaneous
  Country: US (occurrence: US)
  Receive Date: 20130104
  Receipt Date: 20130104
  Transmission Date: 20140127
  Serious: No
  Sender: FDA-Public Use
  Company Number: US-009507513-1301USA001533

PATIENT
  Age: 28 Year
  Sex: Male

DRUGS (6)
  1. CLARITIN-D 24 HOUR [Suspect]
     Indication: SINUS DISORDER
     Dosage: 10 MG, ONCE
     Route: 048
  2. CLARITIN-D 24 HOUR [Suspect]
     Indication: HEADACHE
  3. CLARITIN-D 24 HOUR [Suspect]
     Indication: SNEEZING
  4. CLARITIN-D 24 HOUR [Suspect]
     Indication: PRURITUS
  5. CLARITIN-D 24 HOUR [Suspect]
     Indication: LACRIMATION INCREASED
  6. CLARITIN-D 24 HOUR [Suspect]
     Indication: SINUS HEADACHE

REACTIONS (2)
  - Restlessness [Unknown]
  - Insomnia [Unknown]
